FAERS Safety Report 5096710-6 (Version None)
Quarter: 2006Q3

REPORT INFORMATION
  Report Type: 
  Country: None (occurrence: None)
  Receive Date: 20060831
  Receipt Date: 20060811
  Transmission Date: 20061208
  Serious: Yes (Hospitalization)
  Sender: FDA-Public Use
  Company Number: USA-2006-0025031

PATIENT
  Age: 47 Year
  Sex: Male

DRUGS (5)
  1. OXYCODONE HCL [Suspect]
     Indication: PAIN
     Dosage: 180 MG, DAILY, ORAL
     Route: 048
  2. TRAMADOL HCL [Suspect]
     Indication: SENSORY DISTURBANCE
     Dosage: 50 MG, PRN, ORAL
     Route: 048
     Dates: start: 20041210, end: 20041211
  3. AMITRIPTYLINE HYDROCHLORIDE [Suspect]
     Indication: DEPRESSION
     Dosage: 100 MG, DAILY, ORAL
     Route: 048
     Dates: start: 20041210
  4. OXYBUTYNIN CHLORIDE [Concomitant]
  5. AZATHIOPRINE [Concomitant]

REACTIONS (1)
  - SEROTONIN SYNDROME [None]
